FAERS Safety Report 9513900 (Version 1)
Quarter: 2013Q1

REPORT INFORMATION
  Report Type: Spontaneous
  Country: US (occurrence: None)
  Receive Date: 20130305
  Receipt Date: 20130305
  Transmission Date: 20140127
  Serious: Yes (Other)
  Sender: FDA-Public Use
  Company Number: 163-21880-12102453

PATIENT
  Age: 69 Year
  Sex: Male
  Weight: 64.86 kg

DRUGS (5)
  1. REVLIMID [Suspect]
     Indication: LYMPHOMA
     Dosage: 25 MG, 1 IN 1 D, PO
     Route: 048
     Dates: start: 20120927, end: 20121101
  2. LOVENOX (HEPARIN-FRACTION, SODIUM SALT) (UNKNOWN) [Concomitant]
  3. MUCINEX (GUAIFENESIN) (UNKNOWN) [Concomitant]
  4. STOOL SOFTENER (DOCUSATE SODIUM) (UNKNOWN) [Concomitant]
  5. MIRALAX (MACROGOL) (UNKNOWN) [Concomitant]

REACTIONS (7)
  - Dry skin [None]
  - Rash pruritic [None]
  - Constipation [None]
  - White blood cell count decreased [None]
  - Fatigue [None]
  - Neutrophil count decreased [None]
  - Platelet count decreased [None]
